FAERS Safety Report 18970089 (Version 6)
Quarter: 2024Q4

REPORT INFORMATION
  Report Type: Report from Study
  Country: US (occurrence: US)
  Receive Date: 20210304
  Receipt Date: 20241219
  Transmission Date: 20250115
  Serious: Yes (Other)
  Sender: AEGERION
  Company Number: US-AMRYT PHARMACEUTICALS DAC-AEGR005025

PATIENT
  Age: 28 Year
  Sex: Female
  Weight: 69.3 kg

DRUGS (27)
  1. METRELEPTIN [Suspect]
     Active Substance: METRELEPTIN
     Indication: Congenital generalised lipodystrophy
     Dosage: 7.8 MILLIGRAM, QD
     Dates: start: 20130826
  2. METRELEPTIN [Suspect]
     Active Substance: METRELEPTIN
     Dosage: 3.9 MILLIGRAM, QD
     Dates: start: 20130827
  3. METRELEPTIN [Suspect]
     Active Substance: METRELEPTIN
     Dosage: 4 MILLIGRAM, QD
     Route: 058
     Dates: start: 20141101, end: 20201222
  4. METRELEPTIN [Suspect]
     Active Substance: METRELEPTIN
     Dosage: 5 MILLIGRAM, QD
     Route: 058
     Dates: start: 20201117
  5. METRELEPTIN [Suspect]
     Active Substance: METRELEPTIN
     Dosage: 0.6 MILLILITER, BID
     Route: 058
  6. METRELEPTIN [Suspect]
     Active Substance: METRELEPTIN
     Dosage: 5.5 MILLIGRAM, QD
     Dates: start: 20201223, end: 20210818
  7. METRELEPTIN [Suspect]
     Active Substance: METRELEPTIN
     Dosage: 5 MILLIGRAM, BID
     Dates: start: 20210819, end: 20231013
  8. METRELEPTIN [Suspect]
     Active Substance: METRELEPTIN
     Dosage: 8 MILLIGRAM, QD
  9. METRELEPTIN [Suspect]
     Active Substance: METRELEPTIN
     Dosage: 4 MILLIGRAM, BID
     Dates: start: 20231014, end: 20231220
  10. METRELEPTIN [Suspect]
     Active Substance: METRELEPTIN
     Dosage: 5 MILLIGRAM, BID
     Dates: start: 20231221
  11. MIRENA [Suspect]
     Active Substance: LEVONORGESTREL
     Indication: Contraception
     Dosage: UNK
     Route: 015
     Dates: start: 20200701, end: 20200728
  12. BACTERIOSTATIC WATER [Concomitant]
     Active Substance: WATER
     Indication: Product used for unknown indication
  13. METFORMIN HYDROCHLORIDE [Concomitant]
     Active Substance: METFORMIN HYDROCHLORIDE
     Indication: Diabetes mellitus
     Dosage: 500 MILLIGRAM, QD
     Route: 048
     Dates: end: 20140815
  14. METFORMIN HYDROCHLORIDE [Concomitant]
     Active Substance: METFORMIN HYDROCHLORIDE
     Indication: Insulin resistance
     Dosage: 1000 MILLIGRAM, BID
     Route: 048
     Dates: start: 20140815, end: 20211217
  15. FISH OIL [Concomitant]
     Active Substance: FISH OIL
     Indication: Hypertriglyceridaemia
     Dosage: 4 GRAM
     Dates: start: 20140121
  16. METFORMIN [Concomitant]
     Active Substance: METFORMIN HYDROCHLORIDE
     Indication: Insulin resistance
     Dosage: 500 MILLIGRAM, QD
     Route: 048
     Dates: end: 20140815
  17. METFORMIN [Concomitant]
     Active Substance: METFORMIN HYDROCHLORIDE
     Indication: Diabetes mellitus
     Dosage: 1000 MILLIGRAM, BID
     Dates: start: 1999
  18. METFORMIN [Concomitant]
     Active Substance: METFORMIN HYDROCHLORIDE
     Dosage: 1000 MILLIGRAM, BID
     Route: 048
     Dates: start: 20140815, end: 20211217
  19. METFORMIN [Concomitant]
     Active Substance: METFORMIN HYDROCHLORIDE
     Dosage: 500 MILLIGRAM, QID
     Route: 048
     Dates: start: 20211217
  20. FENOFIBRATE [Concomitant]
     Active Substance: FENOFIBRATE
     Indication: Hypertriglyceridaemia
     Dosage: 145 MILLIGRAM, QD
     Route: 048
     Dates: start: 20211217
  21. FENOFIBRATE [Concomitant]
     Active Substance: FENOFIBRATE
     Dosage: 145 MILLIGRAM, QD
     Route: 048
     Dates: start: 20211217, end: 20221214
  22. FERROUS SULFATE [Concomitant]
     Active Substance: FERROUS SULFATE
     Indication: Supplementation therapy
     Dosage: 325 MILLIGRAM, BID
     Route: 048
     Dates: start: 20151217
  23. VITAMIN E [Concomitant]
     Active Substance: .ALPHA.-TOCOPHEROL
     Indication: Lipodystrophy acquired
     Dosage: UNK INTERNATIONAL UNIT, QD
     Route: 048
     Dates: start: 20130818
  24. OMEGA-3-ACID ETHYL ESTER [Concomitant]
     Active Substance: OMEGA-3-ACID ETHYL ESTERS
     Indication: Lipodystrophy acquired
     Dosage: 1 GRAM, QID
     Dates: start: 20140121
  25. GEMFIBROZIL [Concomitant]
     Active Substance: GEMFIBROZIL
     Indication: Hypertriglyceridaemia
     Dosage: 600 MILLIGRAM, BID
     Route: 048
  26. DIOVAN [Concomitant]
     Active Substance: VALSARTAN
     Indication: Hypertension
     Dosage: 160 MILLIGRAM, QD
     Route: 048
     Dates: end: 20170105
  27. DIOVAN [Concomitant]
     Active Substance: VALSARTAN
     Dosage: 80 MILLIGRAM, BID
     Route: 048
     Dates: start: 20170105

REACTIONS (13)
  - Diabetes mellitus [Unknown]
  - Neutralising antibodies positive [Unknown]
  - Drug specific antibody present [Unknown]
  - Weight increased [Recovered/Resolved]
  - Hyperphagia [Recovered/Resolved]
  - Hypertriglyceridaemia [Not Recovered/Not Resolved]
  - Cellulitis [Recovered/Resolved]
  - Tinea versicolour [Recovered/Resolved]
  - Vitamin D deficiency [Not Recovered/Not Resolved]
  - Insulin resistance [Unknown]
  - Therapeutic product effect decreased [Unknown]
  - Drug ineffective [Recovered/Resolved]
  - Product dose omission issue [Recovered/Resolved]

NARRATIVE: CASE EVENT DATE: 20200501
